FAERS Safety Report 15428251 (Version 1)
Quarter: 2018Q3

REPORT INFORMATION
  Report Type: Spontaneous
  Country: US (occurrence: US)
  Receive Date: 20180926
  Receipt Date: 20180926
  Transmission Date: 20181010
  Serious: Yes (Hospitalization, Other)
  Sender: FDA-Public Use
  Company Number: US-APOTEX-2018AP021233

PATIENT
  Age: 47 Year
  Sex: Female

DRUGS (5)
  1. METHOTREXATE. [Concomitant]
     Active Substance: METHOTREXATE
     Indication: METASTASES TO MENINGES
     Route: 042
  2. LEUSTATIN [Concomitant]
     Active Substance: CLADRIBINE
     Indication: HISTIOCYTIC SARCOMA
  3. DASATINIB. [Suspect]
     Active Substance: DASATINIB
     Indication: HISTIOCYTIC SARCOMA
     Dosage: UNK
     Route: 065
  4. METHOTREXATE. [Concomitant]
     Active Substance: METHOTREXATE
     Indication: HISTIOCYTIC SARCOMA
  5. LEUSTATIN [Concomitant]
     Active Substance: CLADRIBINE
     Indication: MALIGNANT PLEURAL EFFUSION
     Route: 042

REACTIONS (3)
  - Pancreatitis acute [Unknown]
  - Diarrhoea [Unknown]
  - Nausea [Unknown]
